FAERS Safety Report 8424113-2 (Version None)
Quarter: 2012Q2

REPORT INFORMATION
  Report Type: 
  Country: None (occurrence: None)
  Receive Date: 20120608
  Receipt Date: 20111104
  Transmission Date: 20120825
  Serious: No
  Sender: FDA-Public Use
  Company Number: US-ASTRAZENECA-2011SE23992

PATIENT
  Age: 70 Year
  Sex: Male

DRUGS (1)
  1. PULMICORT FLEXHALER [Suspect]
     Indication: BRONCHITIS CHRONIC
     Route: 055
     Dates: start: 20070101

REACTIONS (7)
  - COUGH [None]
  - INCREASED UPPER AIRWAY SECRETION [None]
  - DRUG PRESCRIBING ERROR [None]
  - INCORRECT DOSE ADMINISTERED BY DEVICE [None]
  - PULMONARY CONGESTION [None]
  - ANXIETY [None]
  - CHEST DISCOMFORT [None]
